FAERS Safety Report 9379824 (Version 2)
Quarter: 2013Q2

REPORT INFORMATION
  Report Type: Spontaneous
  Country: FR (occurrence: None)
  Receive Date: 20130627
  Receipt Date: 20130627
  Transmission Date: 20140414
  Serious: Yes (Other)
  Sender: FDA-Public Use
  Company Number: 2013P1010052

PATIENT
  Sex: Male

DRUGS (1)
  1. CEFTRIAXONE [Suspect]

REACTIONS (1)
  - Factor V inhibition [None]
